FAERS Safety Report 7130215-3 (Version None)
Quarter: 2010Q4

REPORT INFORMATION
  Report Type: 
  Country: None (occurrence: None)
  Receive Date: 20101116
  Receipt Date: 20101101
  Transmission Date: 20110411
  Serious: Yes (Other)
  Sender: FDA-Public Use
  Company Number: US-ACCORD-006593

PATIENT
  Age: 77 Year
  Sex: Female

DRUGS (5)
  1. PACLITAXEL [Suspect]
     Indication: BREAST CANCER
     Dosage: INTRAVENOUS (NOT OTHERWISE SPECIFIED)
     Route: 042
  2. ALENDRONATE SODIUM [Concomitant]
  3. LEVOTHYROXINE SODIUM [Concomitant]
  4. VITAMIN D [Concomitant]
  5. ASPIRIN [Concomitant]

REACTIONS (2)
  - DRUG ERUPTION [None]
  - PALMAR-PLANTAR ERYTHRODYSAESTHESIA SYNDROME [None]
